FAERS Safety Report 17534516 (Version 1)
Quarter: 2020Q1

REPORT INFORMATION
  Report Type: Report from Study
  Country: FR (occurrence: FR)
  Receive Date: 20200312
  Receipt Date: 20200312
  Transmission Date: 20200409
  Serious: Yes (Death)
  Sender: FDA-Public Use
  Company Number: FR-MYLANLABS-2020M1027078

PATIENT
  Age: 72 Year
  Sex: Male
  Weight: 51 kg

DRUGS (5)
  1. CABAZITAXEL [Suspect]
     Active Substance: CABAZITAXEL
     Indication: HORMONE-REFRACTORY PROSTATE CANCER
     Dosage: 16 MILLIGRAM/SQ. METER, BIWEEKLY, 16 MG/M2, QOW
     Route: 042
     Dates: start: 20200128
  2. CORTANCYL [Concomitant]
     Active Substance: PREDNISONE
     Indication: CHEMOTHERAPY
     Dosage: 60 MILLIGRAM, QD, 60 MG, QD
     Route: 048
     Dates: start: 20200129
  3. ARANESP [Concomitant]
     Active Substance: DARBEPOETIN ALFA
     Indication: ANAEMIA
     Dosage: UNK, QW
     Route: 058
     Dates: start: 20200131
  4. RED BLOOD CELLS [Concomitant]
     Active Substance: HUMAN RED BLOOD CELL
     Indication: ANAEMIA
     Dosage: UNK, Q8H (TID)
     Route: 042
     Dates: start: 20200127, end: 20200131
  5. PREDNISONE. [Suspect]
     Active Substance: PREDNISONE
     Indication: HORMONE-REFRACTORY PROSTATE CANCER
     Dosage: 10 MILLIGRAM, QD, 10 MG, QD
     Route: 048
     Dates: start: 20200128

REACTIONS (1)
  - Respiratory distress [Fatal]

NARRATIVE: CASE EVENT DATE: 20200204
